FAERS Safety Report 10169011 (Version 1)
Quarter: 2014Q2

REPORT INFORMATION
  Report Type: Spontaneous
  Country: HR (occurrence: None)
  Receive Date: 20140509
  Receipt Date: 20140509
  Transmission Date: 20141212
  Serious: Yes (Other)
  Sender: FDA-Public Use
  Company Number: 1373293

PATIENT
  Age: 43 Year
  Sex: Female

DRUGS (5)
  1. OXCARBAZEPINE [Suspect]
     Indication: EPILEPSY
     Dosage: 300MG AM AND 600MG PM
  2. VALPROATE 1G [Concomitant]
  3. LEVETIRACETAME 750MG [Concomitant]
  4. CLONAZEPAM 4.5MG [Concomitant]
  5. LAMOTRAGINE 100MG [Concomitant]

REACTIONS (5)
  - Dyskinesia [None]
  - Nystagmus [None]
  - Somnolence [None]
  - Dizziness [None]
  - Urticaria [None]
